FAERS Safety Report 6806689-1 (Version None)
Quarter: 2010Q2

REPORT INFORMATION
  Report Type: 
  Country: None (occurrence: None)
  Receive Date: 20100629
  Receipt Date: 20080328
  Transmission Date: 20101027
  Serious: No
  Sender: FDA-Public Use
  Company Number: US-PFIZER INC-2008029763

PATIENT
  Age: 46 Year
  Sex: Female

DRUGS (2)
  1. ARTHROTEC [Suspect]
     Indication: ARTHRITIS
     Dates: start: 20080301
  2. SYNTHROID [Concomitant]

REACTIONS (1)
  - VISUAL IMPAIRMENT [None]
